FAERS Safety Report 5019932-9 (Version None)
Quarter: 2006Q2

REPORT INFORMATION
  Report Type: 
  Country: None (occurrence: None)
  Receive Date: 20060605
  Receipt Date: 20060605
  Transmission Date: 20061013
  Serious: Yes (Other)
  Sender: FDA-Public Use
  Company Number: None

PATIENT
  Sex: Female
  Weight: 147.419 kg

DRUGS (1)
  1. XENICAL [Suspect]
     Indication: WEIGHT CONTROL
     Dosage: 1 CAPSULE   3 TIMES A DAY   PO
     Route: 048
     Dates: start: 20060101, end: 20060403

REACTIONS (3)
  - DRUG INEFFECTIVE [None]
  - DRUG RESISTANCE [None]
  - PHARMACEUTICAL PRODUCT COUNTERFEIT [None]
